FAERS Safety Report 25245977 (Version 2)
Quarter: 2025Q2

REPORT INFORMATION
  Report Type: Spontaneous
  Country: US (occurrence: US)
  Receive Date: 20250428
  Receipt Date: 20250627
  Transmission Date: 20250716
  Serious: No
  Sender: BIOGEN
  Company Number: US-BIOGEN-2025BI01309058

PATIENT
  Age: 47 Year
  Sex: Female

DRUGS (1)
  1. TYSABRI [Suspect]
     Active Substance: NATALIZUMAB
     Indication: Multiple sclerosis
     Dosage: INFUSE 300MG (15ML) INTRAVENOUSLY EVERY 28 DAYS
     Route: 050
     Dates: start: 20221018

REACTIONS (3)
  - Skin lesion [Unknown]
  - Dermatitis [Unknown]
  - Migraine [Unknown]

NARRATIVE: CASE EVENT DATE: 20250626
